FAERS Safety Report 8070973-7 (Version None)
Quarter: 2012Q1

REPORT INFORMATION
  Report Type: 
  Country: None (occurrence: None)
  Receive Date: 20120125
  Receipt Date: 20120119
  Transmission Date: 20120608
  Serious: Yes (Hospitalization)
  Sender: FDA-Public Use
  Company Number: FR-MERCK-1201FRA00081

PATIENT
  Age: 71 Year
  Sex: Male

DRUGS (4)
  1. ASPIRIN AND PRAVASTATIN SODIUM [Concomitant]
     Indication: DYSLIPIDAEMIA
     Route: 048
  2. AVOCADO-SOYBEAN UNSAPONIFIABLE LIPIDS [Concomitant]
     Indication: OSTEOARTHRITIS
     Route: 048
  3. JANUMET [Suspect]
     Indication: TYPE 2 DIABETES MELLITUS
     Route: 048
     Dates: start: 20070101
  4. PROSCAR [Concomitant]
     Indication: PROSTATIC ADENOMA
     Route: 048

REACTIONS (2)
  - THYMOMA [None]
  - THROMBOCYTOPENIA [None]
